FAERS Safety Report 6583539-2 (Version None)
Quarter: 2010Q1

REPORT INFORMATION
  Report Type: 
  Country: None (occurrence: None)
  Receive Date: 20100216
  Receipt Date: 20100212
  Transmission Date: 20100710
  Serious: Yes (Death, Hospitalization)
  Sender: FDA-Public Use
  Company Number: PHEH2010US00446

PATIENT
  Sex: Male
  Weight: 92.063 kg

DRUGS (5)
  1. TASIGNA [Suspect]
     Indication: GASTROINTESTINAL STROMAL TUMOUR
     Dosage: 400 MG, BID
     Route: 048
     Dates: start: 20090404
  2. SYNTHROID [Concomitant]
     Indication: HYPOTHYROIDISM
     Dosage: UNK
     Route: 048
     Dates: start: 20030523
  3. COMPAZINE [Concomitant]
     Indication: NAUSEA
     Dosage: Q6 HRS PRN
     Route: 048
     Dates: start: 20060101
  4. DICYCLOMINE [Concomitant]
     Dosage: 10 MG QID PRN
     Route: 048
     Dates: start: 20060101
  5. VICODIN [Concomitant]
     Indication: PAIN
     Dosage: Q6 HRS PRN
     Route: 048
     Dates: start: 20060101

REACTIONS (6)
  - ACUTE MYOCARDIAL INFARCTION [None]
  - CARDIAC ARREST [None]
  - DYSPNOEA [None]
  - LOSS OF CONSCIOUSNESS [None]
  - TROPONIN INCREASED [None]
  - VENTRICULAR TACHYCARDIA [None]
